FAERS Safety Report 14942904 (Version 2)
Quarter: 2018Q2

REPORT INFORMATION
  Report Type: Report from Study
  Country: CA (occurrence: CA)
  Receive Date: 20180528
  Receipt Date: 20180620
  Transmission Date: 20180711
  Serious: Yes (Other)
  Sender: FDA-Public Use
  Company Number: CA-BRISTOL-MYERS SQUIBB COMPANY-BMS-2018-046380

PATIENT
  Age: 66 Year
  Sex: Male

DRUGS (1)
  1. DASATINIB. [Suspect]
     Active Substance: DASATINIB
     Indication: CHRONIC MYELOID LEUKAEMIA
     Dosage: 40 MG, QD
     Route: 048
     Dates: start: 20110531

REACTIONS (6)
  - Pyrexia [Unknown]
  - Arthralgia [Unknown]
  - Central nervous system infection [Unknown]
  - Dizziness [Recovering/Resolving]
  - Asthenia [Unknown]
  - Prescribed underdose [Unknown]

NARRATIVE: CASE EVENT DATE: 20180326
